FAERS Safety Report 24266774 (Version 3)
Quarter: 2024Q4

REPORT INFORMATION
  Report Type: Spontaneous
  Country: US (occurrence: US)
  Receive Date: 20240830
  Receipt Date: 20241011
  Transmission Date: 20250114
  Serious: No
  Sender: NOVARTIS
  Company Number: US-SANDOZ-SDZ2024US069498

PATIENT
  Age: 29 Year
  Sex: Female
  Weight: 86.168 kg

DRUGS (7)
  1. AMOXICILLIN [Suspect]
     Active Substance: AMOXICILLIN
     Indication: Tooth disorder
     Dosage: UNK
     Route: 065
  2. VALSARTAN [Suspect]
     Active Substance: VALSARTAN
     Indication: Hypertension
     Dosage: 40 MG
     Route: 065
  3. PROPRANOLOL [Suspect]
     Active Substance: PROPRANOLOL HYDROCHLORIDE
     Indication: Product used for unknown indication
     Dosage: 60 MG
     Route: 065
  4. BUSPAR [Suspect]
     Active Substance: BUSPIRONE HYDROCHLORIDE
     Indication: Product used for unknown indication
     Dosage: 5 MG, BID (ABOUT 2 WEEKS NOW)
     Route: 065
  5. PRISTIQ EXTENDED-RELEASE [Suspect]
     Active Substance: DESVENLAFAXINE SUCCINATE
     Indication: Product used for unknown indication
     Dosage: 25 MG, BID; 25 MG (3 DAYS)
     Route: 065
  6. VITAMIN D3 [Concomitant]
     Active Substance: CHOLECALCIFEROL
     Indication: Apnoea
     Dosage: UNK
     Route: 065
  7. FISH OIL [Concomitant]
     Active Substance: FISH OIL
     Indication: Apnoea
     Dosage: UNK
     Route: 065

REACTIONS (22)
  - Panic attack [Unknown]
  - Pain in extremity [Unknown]
  - Peripheral swelling [Recovering/Resolving]
  - Contusion [Recovering/Resolving]
  - Musculoskeletal stiffness [Unknown]
  - Panic attack [Unknown]
  - Headache [Unknown]
  - Anxiety [Unknown]
  - Diarrhoea [Unknown]
  - Myalgia [Unknown]
  - Illness [Unknown]
  - Fatigue [Unknown]
  - Asthenopia [Unknown]
  - Pain [Unknown]
  - Sunburn [Not Recovered/Not Resolved]
  - Depersonalisation/derealisation disorder [Unknown]
  - Gastrointestinal disorder [Unknown]
  - Nausea [Unknown]
  - Dizziness [Unknown]
  - COVID-19 [Recovering/Resolving]
  - Burning sensation [Unknown]
  - Palpitations [Unknown]

NARRATIVE: CASE EVENT DATE: 20240101
